FAERS Safety Report 12394256 (Version 1)
Quarter: 2016Q2

REPORT INFORMATION
  Report Type: Spontaneous
  Country: US (occurrence: US)
  Receive Date: 20160523
  Receipt Date: 20160523
  Transmission Date: 20160815
  Serious: No
  Sender: FDA-Public Use
  Company Number: ALCN2016US003388

PATIENT
  Age: 61 Year
  Sex: Female

DRUGS (1)
  1. ICAPS LO [Suspect]
     Active Substance: MINERALS\VITAMINS
     Indication: VITAMIN SUPPLEMENTATION
     Dosage: 1 CAPSULE, QD
     Route: 048
     Dates: start: 20160511, end: 20160512

REACTIONS (2)
  - Product difficult to swallow [Recovered/Resolved]
  - Oropharyngeal pain [Recovered/Resolved]

NARRATIVE: CASE EVENT DATE: 20160511
